FAERS Safety Report 12400835 (Version 2)
Quarter: 2016Q2

REPORT INFORMATION
  Report Type: Spontaneous
  Country: US (occurrence: US)
  Receive Date: 20160525
  Receipt Date: 20160525
  Transmission Date: 20160815
  Serious: Yes (Other)
  Sender: FDA-Public Use
  Company Number: US-SA-2015SA128774

PATIENT
  Sex: Female

DRUGS (3)
  1. LANTUS [Suspect]
     Active Substance: INSULIN GLARGINE
     Indication: TYPE 2 DIABETES MELLITUS
     Route: 065
     Dates: start: 2015, end: 2015
  2. HUMALOG [Concomitant]
     Active Substance: INSULIN LISPRO
  3. HUMALIN [Concomitant]
     Active Substance: INSULIN NOS

REACTIONS (5)
  - Drug administration error [Unknown]
  - Blood glucose decreased [Recovered/Resolved]
  - Malaise [Unknown]
  - Oedema [Unknown]
  - Diarrhoea [Unknown]
